FAERS Safety Report 4266102-8 (Version None)
Quarter: 2004Q1

REPORT INFORMATION
  Report Type: 
  Country: None (occurrence: None)
  Receive Date: 20040106
  Receipt Date: 20031226
  Transmission Date: 20041129
  Serious: Yes (Life-Threatening)
  Sender: FDA-Public Use
  Company Number: 2004192478FR

PATIENT
  Age: 5 Year
  Sex: Female

DRUGS (7)
  1. SOLU-MEDROL [Suspect]
     Indication: MYELOID LEUKAEMIA
     Dosage: 15 MG, QD, IV
     Route: 042
     Dates: start: 20031001, end: 20031004
  2. THYMOGLOBULIN [Suspect]
     Indication: MYELOID LEUKAEMIA
     Dosage: IV
     Route: 042
     Dates: start: 20031002, end: 20031006
  3. THIOTEPA [Concomitant]
  4. AMSIDINE (AMSACRINE) [Concomitant]
  5. FLUDARA [Concomitant]
  6. NEORAL [Concomitant]
  7. LANVIS (TIOGUANINE) [Concomitant]

REACTIONS (10)
  - BONE MARROW TRANSPLANT [None]
  - BRAIN OEDEMA [None]
  - CEREBRAL ATROPHY [None]
  - DISTURBANCE IN ATTENTION [None]
  - ELECTROENCEPHALOGRAM ABNORMAL [None]
  - ENCEPHALOPATHY [None]
  - MUSCLE SPASMS [None]
  - NUCLEAR MAGNETIC RESONANCE IMAGING BRAIN ABNORMAL [None]
  - SPEECH DISORDER [None]
  - THERAPY NON-RESPONDER [None]
